FAERS Safety Report 15639766 (Version 1)
Quarter: 2018Q4

REPORT INFORMATION
  Report Type: Spontaneous
  Country: IT (occurrence: IT)
  Receive Date: 20181120
  Receipt Date: 20181120
  Transmission Date: 20190205
  Serious: Yes (Other)
  Sender: FDA-Public Use
  Company Number: IT-SA-2018SA313803

PATIENT
  Age: 85 Year
  Sex: Female

DRUGS (3)
  1. FERRO-GRAD [Concomitant]
     Active Substance: FERROUS SULFATE
     Dosage: 2 DF
     Dates: start: 20181005, end: 20181106
  2. FOLINA [FOLIC ACID] [Concomitant]
     Dates: start: 20181005, end: 20181106
  3. ENOXAPARIN SODIUM. [Suspect]
     Active Substance: ENOXAPARIN SODIUM
     Indication: DEEP VEIN THROMBOSIS
     Dosage: 4000 DF, QD
     Route: 058
     Dates: start: 20181009, end: 20181015

REACTIONS (2)
  - Pruritus [Recovered/Resolved]
  - Rash [Recovered/Resolved]

NARRATIVE: CASE EVENT DATE: 20181010
